FAERS Safety Report 10232572 (Version 1)
Quarter: 2014Q2

REPORT INFORMATION
  Report Type: Spontaneous
  Country: CA (occurrence: CA)
  Receive Date: 20140612
  Receipt Date: 20140612
  Transmission Date: 20141212
  Serious: Yes (Other)
  Sender: FDA-Public Use
  Company Number: CA-ASTRAZENECA-2014SE39859

PATIENT
  Age: 88 Year
  Sex: Male

DRUGS (5)
  1. CRESTOR [Suspect]
     Route: 048
     Dates: start: 2010
  2. ZESTRIL [Suspect]
     Route: 048
  3. NORVASC [Concomitant]
     Route: 048
  4. METFORMIN [Concomitant]
     Route: 048
  5. Q10 [Concomitant]
     Route: 048

REACTIONS (6)
  - Angina pectoris [Unknown]
  - Weight decreased [Unknown]
  - Muscular weakness [Unknown]
  - Myalgia [Unknown]
  - Asthenia [Unknown]
  - Amnesia [Unknown]
